FAERS Safety Report 9726943 (Version 1)
Quarter: 2013Q4

REPORT INFORMATION
  Report Type: Spontaneous
  Country: None (occurrence: US)
  Receive Date: 20131203
  Receipt Date: 20131203
  Transmission Date: 20140711
  Serious: No
  Sender: FDA-Public Use
  Company Number: US-NOVEN-13US007311

PATIENT
  Age: 52 Year
  Sex: Male

DRUGS (7)
  1. FENTANYL [Suspect]
     Indication: INTERVERTEBRAL DISC PROTRUSION
     Dosage: 75 UG, Q3DAYS
     Route: 062
     Dates: start: 201306, end: 201307
  2. HYDROCODONE W/ACETAMINOPHEN [Concomitant]
     Dosage: UNK
  3. LYRICA [Concomitant]
     Dosage: UNK
  4. PRASUGREL [Concomitant]
     Dosage: UNK
  5. UNSPECIFIED ANTIDEPRESSANT [Concomitant]
     Dosage: UNK
  6. ASPIRIN [Concomitant]
     Dosage: UNK
  7. UNSPECIFIED MEDICATION [Concomitant]
     Indication: GASTROOESOPHAGEAL REFLUX DISEASE
     Dosage: UNK

REACTIONS (4)
  - Inadequate analgesia [None]
  - Dysarthria [None]
  - Dizziness [None]
  - Drug administration error [None]
